FAERS Safety Report 7421490-6 (Version None)
Quarter: 2011Q1

REPORT INFORMATION
  Report Type: 
  Country: None (occurrence: None)
  Receive Date: 20110302
  Receipt Date: 20101111
  Transmission Date: 20110831
  Serious: No
  Sender: FDA-Public Use
  Company Number: 020513

PATIENT
  Sex: Female
  Weight: 76.2 kg

DRUGS (3)
  1. CIMZIA [Suspect]
     Indication: CROHN'S DISEASE
     Dosage: (400 MG, INDUCTION DOSE SUBCUTANEOUS)
     Route: 058
     Dates: start: 20101001
  2. ENTOCORT EC [Concomitant]
  3. PENTASA [Concomitant]

REACTIONS (2)
  - NASOPHARYNGITIS [None]
  - DRUG INEFFECTIVE [None]
